FAERS Safety Report 11496224 (Version 1)
Quarter: 2015Q3

REPORT INFORMATION
  Report Type: Spontaneous
  Country: US (occurrence: US)
  Receive Date: 20150911
  Receipt Date: 20150911
  Transmission Date: 20151125
  Serious: Yes (Hospitalization, Other)
  Sender: FDA-Public Use
  Company Number: US-SA-2015SA137541

PATIENT
  Sex: Female

DRUGS (3)
  1. APTIOM [Suspect]
     Active Substance: ESLICARBAZEPINE ACETATE
     Indication: PARTIAL SEIZURES
     Route: 048
  2. APTIOM [Suspect]
     Active Substance: ESLICARBAZEPINE ACETATE
     Indication: PARTIAL SEIZURES
     Route: 048
  3. LASIX [Suspect]
     Active Substance: FUROSEMIDE
     Route: 065

REACTIONS (3)
  - Blood sodium decreased [Recovered/Resolved]
  - Confusional state [Recovered/Resolved]
  - Seizure [Recovered/Resolved]
